FAERS Safety Report 17338671 (Version 1)
Quarter: 2020Q1

REPORT INFORMATION
  Report Type: Spontaneous
  Country: US (occurrence: US)
  Receive Date: 20200113
  Receipt Date: 20200113
  Transmission Date: 20200409
  Serious: Yes (Life-Threatening)
  Sender: FDA-Public Use
  Company Number: None

PATIENT
  Age: 66 Year
  Sex: Male
  Weight: 75.75 kg

DRUGS (1)
  1. THC CARTRIDGES [Suspect]
     Active Substance: .DELTA.8-TETRAHYDROCANNABINOL\DEVICE\HERBALS
     Indication: SELF-MEDICATION
     Route: 048
     Dates: start: 20200109, end: 20200109

REACTIONS (5)
  - Seizure [None]
  - Muscle spasms [None]
  - Musculoskeletal stiffness [None]
  - Drug dependence [None]
  - Tremor [None]

NARRATIVE: CASE EVENT DATE: 20200109
